FAERS Safety Report 8832385 (Version 6)
Quarter: 2015Q1

REPORT INFORMATION
  Report Type: Spontaneous
  Country: US (occurrence: US)
  Receive Date: 20121009
  Receipt Date: 20150115
  Transmission Date: 20150721
  Serious: Yes (Hospitalization, Disabling, Other)
  Sender: FDA-Public Use
  Company Number: US-009507513-1205USA00972

PATIENT
  Sex: Female
  Weight: 74.83 kg

DRUGS (2)
  1. FOSAMAX PLUS D [Suspect]
     Active Substance: ALENDRONATE SODIUM\CHOLECALCIFEROL
     Indication: OSTEOPENIA
     Dosage: 70 MG/2,800 IU,QW
     Route: 048
     Dates: start: 2001, end: 201101
  2. FOSAMAX [Suspect]
     Active Substance: ALENDRONATE SODIUM
     Indication: OSTEOPOROSIS
     Dosage: 70 MG, QW
     Route: 048
     Dates: end: 201101

REACTIONS (36)
  - Anxiety [Unknown]
  - Hypertension [Unknown]
  - Foot fracture [Unknown]
  - Anaemia [Unknown]
  - Perineurial cyst [Unknown]
  - Radiculitis [Unknown]
  - Tendonitis [Unknown]
  - Vitamin D deficiency [Unknown]
  - Hysterectomy [Unknown]
  - Vertebral foraminal stenosis [Unknown]
  - Pain in extremity [Unknown]
  - Lumbar radiculopathy [Unknown]
  - Neck pain [Unknown]
  - Back pain [Unknown]
  - Arthralgia [Unknown]
  - Migraine [Unknown]
  - Hot flush [Unknown]
  - Dental caries [Unknown]
  - Muscle disorder [Unknown]
  - Spinal osteoarthritis [Unknown]
  - Upper limb fracture [Unknown]
  - Femur fracture [Recovering/Resolving]
  - Hyperlipidaemia [Unknown]
  - Smear cervix abnormal [Unknown]
  - Lumbar spinal stenosis [Unknown]
  - Musculoskeletal pain [Unknown]
  - Open reduction of fracture [Unknown]
  - Insomnia [Unknown]
  - Intervertebral disc degeneration [Unknown]
  - Blood cholesterol increased [Unknown]
  - Headache [Unknown]
  - Bursitis [Unknown]
  - Intervertebral disc protrusion [Unknown]
  - Gait disturbance [Unknown]
  - Back pain [Unknown]
  - Pain in extremity [Unknown]

NARRATIVE: CASE EVENT DATE: 20001222
